FAERS Safety Report 9524776 (Version 1)
Quarter: 2013Q1

REPORT INFORMATION
  Report Type: Spontaneous
  Country: US (occurrence: None)
  Receive Date: 20130314
  Receipt Date: 20130314
  Transmission Date: 20140127
  Serious: No
  Sender: FDA-Public Use
  Company Number: 1301USA003160

PATIENT
  Sex: 0

DRUGS (2)
  1. VICTRELIS (BOCEPREVIR) CAPSULE, 200MG [Suspect]
  2. PEGINTRON (PEGINTERFERON ALFA-2B) POWDER FOR INJECTION [Suspect]

REACTIONS (1)
  - Inappropriate schedule of drug administration [None]
